FAERS Safety Report 6769519-2 (Version None)
Quarter: 2010Q2

REPORT INFORMATION
  Report Type: 
  Country: None (occurrence: None)
  Receive Date: 20100608
  Receipt Date: 20100531
  Transmission Date: 20101027
  Serious: Yes (Other)
  Sender: FDA-Public Use
  Company Number: 2010SP030071

PATIENT
  Sex: Female

DRUGS (1)
  1. LUCILLE (DESOGESTREL/ETHINYLESTRADIOL /00570801/) [Suspect]

REACTIONS (1)
  - PHOTOSENSITIVITY REACTION [None]
